FAERS Safety Report 11855160 (Version 1)
Quarter: 2015Q4

REPORT INFORMATION
  Report Type: Spontaneous
  Country: GB (occurrence: GB)
  Receive Date: 20151221
  Receipt Date: 20151221
  Transmission Date: 20160305
  Serious: Yes (Other)
  Sender: FDA-Public Use
  Company Number: GB-WATSON-2015-14625

PATIENT
  Age: 33 Year
  Sex: Female

DRUGS (4)
  1. AVOMINE [Suspect]
     Active Substance: PROMETHAZINE TEOCLATE
     Indication: HYPEREMESIS GRAVIDARUM
     Dosage: 25 MG, DAILY
     Route: 048
     Dates: start: 20140916
  2. METOCLOPRAMIDE. [Suspect]
     Active Substance: METOCLOPRAMIDE
     Indication: HYPEREMESIS GRAVIDARUM
     Dosage: 10 MG, DAILY
     Route: 048
     Dates: start: 20141013
  3. CYCLIZINE (UNKNOWN) [Suspect]
     Active Substance: CYCLIZINE
     Indication: HYPEREMESIS GRAVIDARUM
     Dosage: UNK
     Route: 065
     Dates: start: 20141013
  4. ACIDEX                             /01521901/ [Suspect]
     Active Substance: CALCIUM CARBONATE\SODIUM ALGINATE\SODIUM BICARBONATE
     Indication: HYPEREMESIS GRAVIDARUM
     Dosage: UNK (5-10 ML), DAILY
     Route: 048
     Dates: start: 20140925

REACTIONS (4)
  - Premature baby [Unknown]
  - Exposure during pregnancy [Unknown]
  - Caesarean section [Unknown]
  - Pre-eclampsia [Unknown]
